FAERS Safety Report 19210977 (Version 1)
Quarter: 2021Q2

REPORT INFORMATION
  Report Type: Spontaneous
  Country: US (occurrence: US)
  Receive Date: 20210503
  Receipt Date: 20210503
  Transmission Date: 20210717
  Serious: No
  Sender: FDA-Public Use
  Company Number: None

PATIENT
  Age: 54 Year
  Sex: Female
  Weight: 71.1 kg

DRUGS (5)
  1. NP THYROID [Suspect]
     Active Substance: LEVOTHYROXINE\LIOTHYRONINE
     Indication: AUTOIMMUNE THYROIDITIS
     Route: 048
     Dates: start: 20201118, end: 20210125
  2. VITAMIN B12 [Concomitant]
     Active Substance: CYANOCOBALAMIN
  3. SYNTHRYOID [Concomitant]
  4. ADIPEX [Concomitant]
     Active Substance: PHENTERMINE
  5. TOPAMAX [Concomitant]
     Active Substance: TOPIRAMATE

REACTIONS (8)
  - Pain [None]
  - Blood thyroid stimulating hormone increased [None]
  - Insomnia [None]
  - Alopecia [None]
  - Chills [None]
  - Product substitution issue [None]
  - Trichorrhexis [None]
  - Weight increased [None]

NARRATIVE: CASE EVENT DATE: 20210212
